FAERS Safety Report 6570346-X (Version None)
Quarter: 2010Q1

REPORT INFORMATION
  Report Type: 
  Country: None (occurrence: None)
  Receive Date: 20100204
  Receipt Date: 20100127
  Transmission Date: 20100710
  Serious: Yes (Other)
  Sender: FDA-Public Use
  Company Number: US-JNJFOC-20100108219

PATIENT
  Sex: Female
  Weight: 134.72 kg

DRUGS (14)
  1. DURAGESIC-100 [Suspect]
     Indication: FIBROMYALGIA
     Route: 062
  2. DURAGESIC-100 [Suspect]
     Route: 062
  3. DURAGESIC-100 [Suspect]
     Indication: PAIN
     Route: 062
  4. DURAGESIC-100 [Suspect]
     Route: 062
  5. DURAGESIC-100 [Suspect]
     Route: 062
  6. DURAGESIC-100 [Suspect]
     Route: 062
  7. NEURONTIN [Concomitant]
     Indication: NEUROPATHY PERIPHERAL
     Route: 048
  8. PROVIGIL [Concomitant]
     Indication: BRAIN OEDEMA
     Route: 048
  9. PROVIGIL [Concomitant]
     Indication: NARCOLEPSY
     Route: 048
  10. ALBUTEROL [Concomitant]
     Indication: RESPIRATORY DISORDER
     Route: 055
  11. RHINOCORT [Concomitant]
     Indication: SEASONAL ALLERGY
     Route: 045
  12. CELEBREX [Concomitant]
     Indication: ARTHRITIS
     Route: 048
  13. LIPITOR [Concomitant]
     Indication: BLOOD CHOLESTEROL INCREASED
     Route: 048
  14. NEXIUM [Concomitant]
     Indication: GASTROOESOPHAGEAL REFLUX DISEASE
     Route: 048

REACTIONS (14)
  - APPLICATION SITE BURN [None]
  - APPLICATION SITE EXFOLIATION [None]
  - APPLICATION SITE HAEMATOMA [None]
  - APPLICATION SITE PAIN [None]
  - APPLICATION SITE RASH [None]
  - APPLICATION SITE REACTION [None]
  - BIPOLAR DISORDER [None]
  - DRUG ADMINISTERED AT INAPPROPRIATE SITE [None]
  - DRUG INEFFECTIVE [None]
  - PAIN [None]
  - PALPITATIONS [None]
  - PRODUCT ADHESION ISSUE [None]
  - WEIGHT DECREASED [None]
  - WRONG TECHNIQUE IN DRUG USAGE PROCESS [None]
